FAERS Safety Report 7657101-4 (Version None)
Quarter: 2011Q3

REPORT INFORMATION
  Report Type: 
  Country: None (occurrence: None)
  Receive Date: 20110804
  Receipt Date: 20101201
  Transmission Date: 20111222
  Serious: No
  Sender: FDA-Public Use
  Company Number: US-GLAXOSMITHKLINE-A0897216A

PATIENT
  Age: 62 Year
  Sex: Male

DRUGS (4)
  1. CARDIZEM [Concomitant]
  2. ADVAIR DISKUS 100/50 [Suspect]
     Indication: ASTHMA
     Dosage: 2PUFF TWICE PER DAY
     Route: 055
  3. LOTENSIN [Concomitant]
  4. NEXIUM [Concomitant]

REACTIONS (6)
  - CARBON DIOXIDE INCREASED [None]
  - DYSPNOEA [None]
  - DISCOMFORT [None]
  - ANXIETY [None]
  - CANDIDIASIS [None]
  - PRODUCT QUALITY ISSUE [None]
